FAERS Safety Report 21291176 (Version 1)
Quarter: 2022Q3

REPORT INFORMATION
  Report Type: Spontaneous
  Country: US (occurrence: US)
  Receive Date: 20220903
  Receipt Date: 20220903
  Transmission Date: 20221026
  Serious: Yes (Other)
  Sender: FDA-Public Use
  Company Number: US-SA-SAC20220901000402

PATIENT
  Sex: Male

DRUGS (3)
  1. ZANTAC [Suspect]
     Active Substance: RANITIDINE HYDROCHLORIDE
     Dosage: PRESCRIPTION ZANTAC
     Route: 048
     Dates: start: 1984, end: 2017
  2. ZANTAC [Suspect]
     Active Substance: RANITIDINE HYDROCHLORIDE
     Dosage: OVER THE COUNTER ZANTAC FROM APPROXIMATELY 1984 TO 2017
     Route: 048
  3. RANITIDINE HYDROCHLORIDE [Suspect]
     Active Substance: RANITIDINE HYDROCHLORIDE
     Dosage: PRESCRIPTION RANITIDINE FROM APPROXIMATELY 1997 TO 2017
     Route: 048
     Dates: start: 1997, end: 2017

REACTIONS (1)
  - Prostate cancer [Unknown]
